FAERS Safety Report 7621559-7 (Version None)
Quarter: 2011Q3

REPORT INFORMATION
  Report Type: 
  Country: None (occurrence: None)
  Receive Date: 20110719
  Receipt Date: 20110715
  Transmission Date: 20111222
  Serious: Yes (Death, Other)
  Sender: FDA-Public Use
  Company Number: PHEH2009US02345

PATIENT
  Sex: Female

DRUGS (1)
  1. ZOMETA [Suspect]
     Indication: NEOPLASM MALIGNANT
     Dates: start: 20030101, end: 20060101

REACTIONS (22)
  - ABSCESS [None]
  - BONE LOSS [None]
  - SEXUAL DYSFUNCTION [None]
  - GENERAL PHYSICAL HEALTH DETERIORATION [None]
  - INJURY [None]
  - ASPARTATE AMINOTRANSFERASE DECREASED [None]
  - OSTEONECROSIS OF JAW [None]
  - DEFORMITY [None]
  - ANXIETY [None]
  - OVERDOSE [None]
  - JAW FRACTURE [None]
  - EMOTIONAL DISTRESS [None]
  - BLOOD GLUCOSE INCREASED [None]
  - ALANINE AMINOTRANSFERASE DECREASED [None]
  - DEPRESSION [None]
  - RENAL IMPAIRMENT [None]
  - BLOOD TRIGLYCERIDES INCREASED [None]
  - DEATH [None]
  - ORAL CAVITY FISTULA [None]
  - PAIN [None]
  - INFECTION [None]
  - PHYSICAL DISABILITY [None]
